FAERS Safety Report 12897301 (Version 1)
Quarter: 2016Q4

REPORT INFORMATION
  Report Type: Spontaneous
  Country: US (occurrence: US)
  Receive Date: 20161031
  Receipt Date: 20161031
  Transmission Date: 20170207
  Serious: No
  Sender: FDA-Public Use
  Company Number: None

PATIENT
  Age: 75 Year
  Sex: Female
  Weight: 68.04 kg

DRUGS (2)
  1. CIPRO [Suspect]
     Active Substance: CIPROFLOXACIN HYDROCHLORIDE
     Dates: start: 20160602, end: 20160611
  2. LEVOFLOXACIN. [Suspect]
     Active Substance: LEVOFLOXACIN

REACTIONS (6)
  - Sinus disorder [None]
  - Joint swelling [None]
  - Orthosis user [None]
  - Atypical pneumonia [None]
  - Bronchitis [None]
  - Arthralgia [None]

NARRATIVE: CASE EVENT DATE: 20160601
